FAERS Safety Report 5534000-5 (Version None)
Quarter: 2007Q4

REPORT INFORMATION
  Report Type: 
  Country: None (occurrence: None)
  Receive Date: 20071130
  Receipt Date: 20071124
  Transmission Date: 20080405
  Serious: Yes (Hospitalization, Other)
  Sender: FDA-Public Use
  Company Number: 2007SP023712

PATIENT
  Age: 47 Year
  Sex: Female
  Weight: 108.8633 kg

DRUGS (4)
  1. PEG-INTRON [Suspect]
     Indication: HEPATITIS C
     Dosage: SC
     Route: 058
  2. RIBAVIRIN [Suspect]
     Indication: HEPATITIS C
     Dosage: PO
     Route: 048
  3. CLOZAPINE [Concomitant]
  4. REMERON [Concomitant]

REACTIONS (8)
  - ALOPECIA [None]
  - ANAEMIA [None]
  - ANOREXIA [None]
  - ANXIETY [None]
  - BLOOD POTASSIUM DECREASED [None]
  - CONDITION AGGRAVATED [None]
  - DEPRESSION [None]
  - WEIGHT DECREASED [None]
